FAERS Safety Report 12273262 (Version 1)
Quarter: 2016Q2

REPORT INFORMATION
  Report Type: Spontaneous
  Country: IT (occurrence: IT)
  Receive Date: 20160415
  Receipt Date: 20160415
  Transmission Date: 20160815
  Serious: Yes (Other)
  Sender: FDA-Public Use
  Company Number: IT-WATSON-2016-07553

PATIENT
  Age: 59 Year
  Sex: Male

DRUGS (5)
  1. PREDNISONE (UNKNOWN) [Suspect]
     Active Substance: PREDNISONE
     Indication: PEMPHIGOID
     Dosage: 25 MG/DAILY TAPERING DOSE
     Route: 065
  2. DAPSONE. [Concomitant]
     Active Substance: DAPSONE
     Indication: PEMPHIGOID
     Dosage: 100 MG, DAILY
     Route: 065
  3. EFALIZUMAB [Suspect]
     Active Substance: EFALIZUMAB
     Indication: PEMPHIGOID
     Dosage: 1 MG/KG, 1/WEEK
     Route: 065
     Dates: start: 2007, end: 2009
  4. ETANERCEPT [Suspect]
     Active Substance: ETANERCEPT
     Indication: PEMPHIGOID
     Route: 065
     Dates: start: 2009, end: 2013
  5. CICLOSPORIN [Concomitant]
     Active Substance: CYCLOSPORINE
     Indication: PSORIASIS
     Dosage: 3 MG/KG, DAILY
     Route: 065

REACTIONS (1)
  - Papillary cystadenoma lymphomatosum [Unknown]

NARRATIVE: CASE EVENT DATE: 2013
